FAERS Safety Report 9447292 (Version 1)
Quarter: 2013Q3

REPORT INFORMATION
  Report Type: Spontaneous
  Country: PT (occurrence: PT)
  Receive Date: 20130808
  Receipt Date: 20130808
  Transmission Date: 20140515
  Serious: Yes (Disabling)
  Sender: FDA-Public Use
  Company Number: PT-AMGEN-PRTSP2013054404

PATIENT
  Age: 69 Year
  Sex: Male

DRUGS (6)
  1. ARANESP [Suspect]
     Indication: ANAEMIA
     Dosage: 20 MUG, Q2WK
     Route: 058
     Dates: start: 20121028, end: 20130415
  2. URIPRIM [Concomitant]
     Indication: HYPERURICAEMIA
     Dosage: 100 MG, QD
  3. ZARATOR                            /01326101/ [Concomitant]
     Indication: HYPERURICAEMIA
     Dosage: 10 MG, QD
  4. LASIX                              /00032601/ [Concomitant]
     Indication: OEDEMA
     Dosage: 40 MG, QD
  5. ULTRAMIDOL [Concomitant]
     Indication: ANXIETY
     Dosage: 30 MG, QD
     Dates: start: 2011
  6. ALFUZOSIN [Concomitant]
     Indication: URINARY RETENTION
     Dosage: 10 MG, QD
     Dates: start: 2012

REACTIONS (1)
  - Diarrhoea [Recovered/Resolved]
